FAERS Safety Report 5020973-6 (Version None)
Quarter: 2006Q2

REPORT INFORMATION
  Report Type: 
  Country: None (occurrence: None)
  Receive Date: 20060608
  Receipt Date: 20060601
  Transmission Date: 20061013
  Serious: Yes (Life-Threatening)
  Sender: FDA-Public Use
  Company Number: PHBS2006ES08044

PATIENT
  Age: 83 Year
  Sex: Female

DRUGS (2)
  1. MIKELAN (NVO) [Suspect]
     Dosage: 8 DROPS/DAY
     Dates: end: 20050718
  2. AMIODARONE HYDROCHLORIDE [Suspect]
     Dosage: 200 MG/DAY
     Route: 048
     Dates: end: 20050715

REACTIONS (3)
  - BRADYCARDIA [None]
  - HYPERKALAEMIA [None]
  - NODAL ARRHYTHMIA [None]
